FAERS Safety Report 10085950 (Version 3)
Quarter: 2014Q3

REPORT INFORMATION
  Report Type: Spontaneous
  Country: GB (occurrence: None)
  Receive Date: 20140408
  Receipt Date: 20140708
  Transmission Date: 20150326
  Serious: Yes (Other)
  Sender: FDA-Public Use
  Company Number: BTG00116

PATIENT
  Age: 84 Year
  Sex: Female

DRUGS (3)
  1. DIGIFAB [Suspect]
     Active Substance: OVINE DIGOXIN IMMUNE FAB
     Indication: TOXICITY TO VARIOUS AGENTS
     Dosage: 4 VIALS, SINGLE
     Dates: start: 20140312
  2. ATENOLOL (ATENOLOL) [Suspect]
     Active Substance: ATENOLOL
     Indication: PRODUCT USED FOR UNKNOWN INDICATION
  3. DIGOXIN. [Suspect]
     Active Substance: DIGOXIN
     Indication: PRODUCT USED FOR UNKNOWN INDICATION

REACTIONS (5)
  - Drug ineffective [None]
  - Toxicity to various agents [None]
  - Bradycardia [None]
  - Atrioventricular block second degree [None]
  - Atrioventricular block complete [None]
